FAERS Safety Report 12642590 (Version 1)
Quarter: 2016Q3

REPORT INFORMATION
  Report Type: Report from Study
  Country: FR (occurrence: FR)
  Receive Date: 20160810
  Receipt Date: 20160810
  Transmission Date: 20161109
  Serious: Yes (Other)
  Sender: FDA-Public Use
  Company Number: FR-AMGEN-FRANI2016090508

PATIENT
  Age: 60 Year
  Sex: Female
  Weight: 53 kg

DRUGS (1)
  1. ETANERCEPT [Suspect]
     Active Substance: ETANERCEPT
     Indication: PSORIASIS
     Dosage: 50 MG, ONCE EVERY 2 WEEKS
     Route: 058
     Dates: start: 20140709

REACTIONS (3)
  - Psoriasis [Recovered/Resolved]
  - Condition aggravated [Recovered/Resolved]
  - Drug ineffective [Recovering/Resolving]

NARRATIVE: CASE EVENT DATE: 201512
